FAERS Safety Report 8960247 (Version 1)
Quarter: 2012Q4

REPORT INFORMATION
  Report Type: 
  Country: CA (occurrence: CA)
  Receive Date: 20121211
  Receipt Date: 20121211
  Transmission Date: 20130627
  Serious: No
  Sender: FDA-Public Use
  Company Number: CA-B.I. PHARMACEUTICALS,INC./RIDGEFIELD-2012-BI-01759BP

PATIENT
  Sex: Male

DRUGS (1)
  1. MIRAPEX [Suspect]
     Indication: PARKINSON^S DISEASE
     Dates: start: 20060907

REACTIONS (4)
  - Pathological gambling [Recovered/Resolved]
  - Blood alcohol increased [Recovered/Resolved]
  - Hyperphagia [Recovered/Resolved]
  - Nausea [Unknown]
